FAERS Safety Report 5447843-3 (Version None)
Quarter: 2007Q3

REPORT INFORMATION
  Report Type: 
  Country: None (occurrence: None)
  Receive Date: 20070910
  Receipt Date: 20070829
  Transmission Date: 20080115
  Serious: Yes (Other)
  Sender: FDA-Public Use
  Company Number: US-PFIZER INC-2007072501

PATIENT
  Sex: Female
  Weight: 65.909 kg

DRUGS (13)
  1. LYRICA [Suspect]
     Indication: FIBROMYALGIA
  2. DONNATAL [Concomitant]
  3. SOMA [Concomitant]
  4. NORCO [Concomitant]
  5. ACIPHEX [Concomitant]
  6. TEMAZEPAM [Concomitant]
  7. PSEUDOEPHEDRINE HCL [Concomitant]
  8. CHLORPHENIRAMINE TAB [Concomitant]
  9. ZOLOFT [Concomitant]
  10. PREMARIN [Concomitant]
  11. PROVERA [Concomitant]
  12. IBUPROFEN [Concomitant]
  13. VALTREX [Concomitant]

REACTIONS (5)
  - ACTIVITIES OF DAILY LIVING IMPAIRED [None]
  - DRUG INEFFECTIVE [None]
  - DYSARTHRIA [None]
  - PARAESTHESIA [None]
  - SOMNOLENCE [None]
